FAERS Safety Report 25873443 (Version 1)
Quarter: 2025Q4

REPORT INFORMATION
  Report Type: Spontaneous
  Country: US (occurrence: US)
  Receive Date: 20251002
  Receipt Date: 20251002
  Transmission Date: 20260117
  Serious: No
  Sender: TAKEDA
  Company Number: US-TAKEDA-2025TUS084729

PATIENT
  Sex: Male

DRUGS (2)
  1. FRUZAQLA [Suspect]
     Active Substance: FRUQUINTINIB
     Indication: Product used for unknown indication
     Dosage: 5 MILLIGRAM
  2. ZOMETA [Concomitant]
     Active Substance: ZOLEDRONIC ACID
     Dosage: UNK

REACTIONS (3)
  - Myalgia [Unknown]
  - Muscle spasms [Unknown]
  - Arthralgia [Unknown]
